FAERS Safety Report 22180579 (Version 1)
Quarter: 2023Q2

REPORT INFORMATION
  Report Type: Spontaneous
  Country: FR (occurrence: FR)
  Receive Date: 20230406
  Receipt Date: 20230406
  Transmission Date: 20230721
  Serious: Yes (Other)
  Sender: FDA-Public Use
  Company Number: FR-AstraZeneca-2022-38923

PATIENT
  Age: 21017 Day
  Sex: Male

DRUGS (54)
  1. OXALIPLATIN [Suspect]
     Active Substance: OXALIPLATIN
     Indication: Oesophageal carcinoma
     Dosage: 85.0 MG/M2  ON DAYS 1 AND 15 EVERY FOUR WEEKS
     Route: 042
     Dates: start: 20220119
  2. OXALIPLATIN [Suspect]
     Active Substance: OXALIPLATIN
     Indication: Gastric cancer
     Dosage: 85.0 MG/M2  ON DAYS 1 AND 15 EVERY FOUR WEEKS
     Route: 042
     Dates: start: 20220202
  3. OXALIPLATIN [Suspect]
     Active Substance: OXALIPLATIN
     Dosage: 85.0 MG/M2  ON DAYS 1 AND 15 EVERY FOUR WEEKS
     Route: 042
     Dates: start: 20220216
  4. OXALIPLATIN [Suspect]
     Active Substance: OXALIPLATIN
     Dosage: 85.0 MG/M2  ON DAYS 1 AND 15 EVERY FOUR WEEKS
     Route: 042
     Dates: start: 20220302
  5. OXALIPLATIN [Suspect]
     Active Substance: OXALIPLATIN
     Dosage: 85.0 MG/M2  ON DAYS 1 AND 15 EVERY FOUR WEEKS
     Route: 042
     Dates: start: 20220721
  6. OXALIPLATIN [Suspect]
     Active Substance: OXALIPLATIN
     Dosage: 85.0 MG/M2  ON DAYS 1 AND 15 EVERY FOUR WEEKS
     Route: 042
     Dates: start: 20220804
  7. OXALIPLATIN [Suspect]
     Active Substance: OXALIPLATIN
     Dosage: 85.0 MG/M2  ON DAYS 1 AND 15 EVERY FOUR WEEKS
     Route: 042
     Dates: start: 20220908
  8. OXALIPLATIN [Suspect]
     Active Substance: OXALIPLATIN
     Dosage: 85.0 MG/M2  ON DAYS 1 AND 15 EVERY FOUR WEEKS
     Route: 042
     Dates: start: 20220923
  9. DURVALUMAB [Suspect]
     Active Substance: DURVALUMAB
     Indication: Oesophageal carcinoma
     Dosage: 1500 MILLIGRAM 4 WEEKS
     Route: 042
     Dates: start: 20220119
  10. DURVALUMAB [Suspect]
     Active Substance: DURVALUMAB
     Indication: Gastric cancer
     Dosage: 1500 MILLIGRAM 4 WEEKS
     Route: 042
     Dates: start: 20220216
  11. DURVALUMAB [Suspect]
     Active Substance: DURVALUMAB
     Dosage: 1500 MILLIGRAM 4 WEEKS
     Route: 042
     Dates: start: 20220721
  12. DURVALUMAB [Suspect]
     Active Substance: DURVALUMAB
     Dosage: 1500 MILLIGRAM 4 WEEKS
     Route: 042
     Dates: start: 20220908
  13. DURVALUMAB [Suspect]
     Active Substance: DURVALUMAB
     Dosage: 1500 MILLIGRAM 4 WEEKS
     Route: 042
     Dates: start: 20221006
  14. FLUOROURACIL [Suspect]
     Active Substance: FLUOROURACIL
     Indication: Gastric cancer
     Dosage: 2600.0 MG/M2  ON DAYS 1 AND 15 EVERY FOUR WEEKS
     Route: 042
     Dates: start: 20220119
  15. FLUOROURACIL [Suspect]
     Active Substance: FLUOROURACIL
     Indication: Oesophageal carcinoma
     Dosage: 2600.0 MG/M2  ON DAYS 1 AND 15 EVERY FOUR WEEKS
     Route: 042
     Dates: start: 20220202
  16. FLUOROURACIL [Suspect]
     Active Substance: FLUOROURACIL
     Dosage: 2600.0 MG/M2  ON DAYS 1 AND 15 EVERY FOUR WEEKS
     Route: 042
     Dates: start: 20220216
  17. FLUOROURACIL [Suspect]
     Active Substance: FLUOROURACIL
     Dosage: 2600.0 MG/M2  ON DAYS 1 AND 15 EVERY FOUR WEEKS
     Route: 042
     Dates: start: 20220302
  18. FLUOROURACIL [Suspect]
     Active Substance: FLUOROURACIL
     Dosage: 2600.0 MG/M2  ON DAYS 1 AND 15 EVERY FOUR WEEKS
     Route: 042
     Dates: start: 20220721
  19. FLUOROURACIL [Suspect]
     Active Substance: FLUOROURACIL
     Dosage: 2600.0 MG/M2  ON DAYS 1 AND 15 EVERY FOUR WEEKS
     Route: 042
     Dates: start: 20220804
  20. FLUOROURACIL [Suspect]
     Active Substance: FLUOROURACIL
     Dosage: 2600.0 MG/M2  ON DAYS 1 AND 15 EVERY FOUR WEEKS
     Route: 042
     Dates: start: 20220908
  21. FLUOROURACIL [Suspect]
     Active Substance: FLUOROURACIL
     Dosage: 2600.0 MG/M2  ON DAYS 1 AND 15 EVERY FOUR WEEKS
     Route: 042
     Dates: start: 20220923
  22. Dexeryl [Concomitant]
     Indication: Xerosis
     Dosage: 1.0 APPLICATION  AS REQUIRED
     Route: 003
     Dates: start: 20220202
  23. DOCETAXEL [Concomitant]
     Active Substance: DOCETAXEL
     Indication: Gastric cancer
     Dosage: 50.0 MG/M2  ON DAYS 1 AND 15 EVERY FOUR WEEKS
     Route: 042
     Dates: start: 20220119
  24. DOCETAXEL [Concomitant]
     Active Substance: DOCETAXEL
     Dosage: 50.0 MG/M2  ON DAYS 1 AND 15 EVERY FOUR WEEKS
     Route: 042
     Dates: start: 20220202
  25. DOCETAXEL [Concomitant]
     Active Substance: DOCETAXEL
     Dosage: 50.0 MG/M2  ON DAYS 1 AND 15 EVERY FOUR WEEKS
     Route: 042
     Dates: start: 20220216
  26. DOCETAXEL [Concomitant]
     Active Substance: DOCETAXEL
     Dosage: 50.0 MG/M2  ON DAYS 1 AND 15 EVERY FOUR WEEKS
     Route: 042
     Dates: start: 20220302
  27. DOCETAXEL [Concomitant]
     Active Substance: DOCETAXEL
     Dosage: 50.0 MG/M2  ON DAYS 1 AND 15 EVERY FOUR WEEKS
     Route: 042
     Dates: start: 20220721
  28. DOCETAXEL [Concomitant]
     Active Substance: DOCETAXEL
     Dosage: 50.0 MG/M2  ON DAYS 1 AND 15 EVERY FOUR WEEKS
     Route: 042
     Dates: start: 20220804
  29. DOCETAXEL [Concomitant]
     Active Substance: DOCETAXEL
     Dosage: 50.0 MG/M2  ON DAYS 1 AND 15 EVERY FOUR WEEKS
     Route: 042
     Dates: start: 20220908
  30. DOCETAXEL [Concomitant]
     Active Substance: DOCETAXEL
     Dosage: 50.0 MG/M2  ON DAYS 1 AND 15 EVERY FOUR WEEKS
     Route: 042
     Dates: start: 20220923, end: 20220923
  31. EMEND [Concomitant]
     Active Substance: APREPITANT
     Indication: Prophylaxis of nausea and vomiting
     Dosage: 1.0 DF  3 DAYS AFTER EACH CHEMOTHERAPY INFUSION
     Route: 048
     Dates: start: 20220119
  32. EMLA [Concomitant]
     Active Substance: LIDOCAINE\PRILOCAINE
     Indication: Dyspepsia
     Dosage: 1 DOSAGE FORM, AS NECESSARY
     Route: 062
     Dates: start: 20220119
  33. IMODIUM [Concomitant]
     Active Substance: LOPERAMIDE HYDROCHLORIDE
     Indication: Diarrhoea
     Dosage: AS REQUIRED
     Route: 048
     Dates: start: 20220119
  34. ACETAMINOPHEN\CODEINE PHOSPHATE [Concomitant]
     Active Substance: ACETAMINOPHEN\CODEINE PHOSPHATE
     Indication: Pain
     Dosage: UNK
     Route: 048
  35. Lamaline [Concomitant]
     Indication: Pain
     Dosage: AS REQUIRED
     Route: 048
  36. LEUCOVORIN [Concomitant]
     Active Substance: LEUCOVORIN
     Indication: Gastric cancer
     Dosage: 200.0 MG/M2  ON DAYS 1 AND 15 EVERY FOUR WEEKS
     Route: 042
     Dates: start: 20220119
  37. LEUCOVORIN [Concomitant]
     Active Substance: LEUCOVORIN
     Dosage: 200.0 MG/M2  ON DAYS 1 AND 15 EVERY FOUR WEEKS
     Route: 042
     Dates: start: 20220202
  38. LEUCOVORIN [Concomitant]
     Active Substance: LEUCOVORIN
     Dosage: 200.0 MG/M2  ON DAYS 1 AND 15 EVERY FOUR WEEKS
     Route: 042
     Dates: start: 20220216
  39. LEUCOVORIN [Concomitant]
     Active Substance: LEUCOVORIN
     Dosage: 200.0 MG/M2  ON DAYS 1 AND 15 EVERY FOUR WEEKS
     Route: 042
     Dates: start: 20220302
  40. LEUCOVORIN [Concomitant]
     Active Substance: LEUCOVORIN
     Dosage: 200.0 MG/M2  ON DAYS 1 AND 15 EVERY FOUR WEEKS
     Route: 042
     Dates: start: 20220721
  41. LEUCOVORIN [Concomitant]
     Active Substance: LEUCOVORIN
     Dosage: 200.0 MG/M2  ON DAYS 1 AND 15 EVERY FOUR WEEKS
     Route: 042
     Dates: start: 20220804
  42. LEUCOVORIN [Concomitant]
     Active Substance: LEUCOVORIN
     Dosage: 200.0 MG/M2  ON DAYS 1 AND 15 EVERY FOUR WEEKS
     Route: 042
     Dates: start: 20220908
  43. LEUCOVORIN [Concomitant]
     Active Substance: LEUCOVORIN
     Dosage: 200.0 MG/M2  ON DAYS 1 AND 15 EVERY FOUR WEEKS
     Route: 042
     Dates: start: 20220923
  44. METHYLPREDNISOLONE [Concomitant]
     Active Substance: METHYLPREDNISOLONE
     Indication: Prophylaxis of nausea and vomiting
     Dosage: 80 MILLIGRAM TOTAL
     Route: 042
     Dates: start: 20220216, end: 20220216
  45. METHYLPREDNISOLONE [Concomitant]
     Active Substance: METHYLPREDNISOLONE
     Dosage: 80 MILLIGRAM80 MILLIGRAM TOTAL
     Route: 042
     Dates: start: 20220302, end: 20220302
  46. NEULASTA [Concomitant]
     Active Substance: PEGFILGRASTIM
     Indication: Neutropenia
     Dosage: 6 MILLIGRAM EVERY  WEEKS
     Route: 058
     Dates: start: 20220203
  47. ONDANSETRON [Concomitant]
     Active Substance: ONDANSETRON
     Indication: Prophylaxis of nausea and vomiting
     Dosage: 8 MILLIGRAM TOTAL
     Route: 042
     Dates: start: 20220216, end: 20220216
  48. ONDANSETRON [Concomitant]
     Active Substance: ONDANSETRON
     Dosage: 8 MILLIGRAM TOTAL
     Route: 042
     Dates: start: 20220302
  49. ACETAMINOPHEN [Concomitant]
     Active Substance: ACETAMINOPHEN
     Indication: Pain
     Dosage: 1 GRAM, AS NECESSARY
     Route: 048
     Dates: start: 20220228
  50. PRIMPERAN [Concomitant]
     Active Substance: METOCLOPRAMIDE HYDROCHLORIDE
     Indication: Prophylaxis of nausea and vomiting
     Dosage: 10 MILLIGRAM, AS NECESSARY
     Route: 048
     Dates: start: 20220119
  51. SMECTA [Concomitant]
     Active Substance: MONTMORILLONITE
     Indication: Diarrhoea
     Dosage: AS REQUIRED
     Route: 048
     Dates: start: 20220119
  52. Solupred [Concomitant]
     Indication: Prophylaxis of nausea and vomiting
     Dosage: 60.0 MG  3 DAYS AFTER EACH CHEMOTHERAPY INFUSION
     Route: 048
     Dates: start: 20220119
  53. TADALAFIL [Concomitant]
     Active Substance: TADALAFIL
     Indication: Benign prostatic hyperplasia
     Dosage: 5 MILLIGRAM, ONCE A DAY
     Route: 048
  54. ALFUZOSIN [Concomitant]
     Active Substance: ALFUZOSIN
     Indication: Benign prostatic hyperplasia
     Dosage: 10 MILLIGRAM, ONCE A DAY
     Route: 048
     Dates: start: 20220216

REACTIONS (1)
  - Staphylococcal infection [Recovered/Resolved]

NARRATIVE: CASE EVENT DATE: 20220318
